FAERS Safety Report 7191586-5 (Version None)
Quarter: 2010Q4

REPORT INFORMATION
  Report Type: 
  Country: None (occurrence: None)
  Receive Date: 20101221
  Receipt Date: 20101221
  Transmission Date: 20110411
  Serious: Yes (Life-Threatening, Hospitalization)
  Sender: FDA-Public Use
  Company Number: None

PATIENT
  Age: 72 Year
  Sex: Female
  Weight: 65.318 kg

DRUGS (1)
  1. PRISTIQ [Suspect]
     Indication: ANTIDEPRESSANT THERAPY
     Dosage: ONE TABLET DAILY AM TABLET MOUTH
     Route: 048
     Dates: start: 20101022, end: 20101129

REACTIONS (1)
  - BLOOD PRESSURE INCREASED [None]
